FAERS Safety Report 21043422 (Version 1)
Quarter: 2022Q3

REPORT INFORMATION
  Report Type: Spontaneous
  Country: US (occurrence: US)
  Receive Date: 20220705
  Receipt Date: 20220705
  Transmission Date: 20221027
  Serious: Yes (Other)
  Sender: FDA-Public Use
  Company Number: US-PFIZER INC-2021105989

PATIENT
  Age: 27 Year
  Sex: Male

DRUGS (1)
  1. XELJANZ [Suspect]
     Active Substance: TOFACITINIB CITRATE
     Indication: Rheumatoid arthritis
     Dosage: 5 MG, 2X/DAY (TWICE DAILY)
     Route: 048
     Dates: start: 202011, end: 2022

REACTIONS (6)
  - Hepatitis viral [Unknown]
  - Drug ineffective [Unknown]
  - Product dose omission in error [Unknown]
  - COVID-19 [Unknown]
  - Discouragement [Not Recovered/Not Resolved]
  - Depression [Not Recovered/Not Resolved]
